FAERS Safety Report 4397930-6 (Version None)
Quarter: 2004Q3

REPORT INFORMATION
  Report Type: 
  Country: None (occurrence: None)
  Receive Date: 20040713
  Receipt Date: 20040628
  Transmission Date: 20050211
  Serious: Yes (Hospitalization)
  Sender: FDA-Public Use
  Company Number: 172313

PATIENT
  Age: 55 Year
  Sex: Female
  Weight: 48.9885 kg

DRUGS (1)
  1. AVONEX [Suspect]
     Indication: MULTIPLE SCLEROSIS
     Dosage: 30 MCG QW IM
     Route: 030
     Dates: start: 20010601, end: 20030331

REACTIONS (9)
  - CERVICAL CORD COMPRESSION [None]
  - DEPRESSION [None]
  - EMOTIONAL DISTRESS [None]
  - FALL [None]
  - JOINT STIFFNESS [None]
  - MUSCLE SPASTICITY [None]
  - PAIN EXACERBATED [None]
  - SPONDYLOSIS [None]
  - WEIGHT INCREASED [None]
